FAERS Safety Report 4494215-4 (Version None)
Quarter: 2004Q4

REPORT INFORMATION
  Report Type: 
  Country: None (occurrence: None)
  Receive Date: 20041104
  Receipt Date: 20041104
  Transmission Date: 20050328
  Serious: Yes (Death)
  Sender: FDA-Public Use
  Company Number: None

PATIENT
  Age: 84 Day
  Sex: Female
  Weight: 2.5 kg

DRUGS (9)
  1. SILDENAFIL CITRATE 2.5 MG/ML SUSPENSION (MADE BY PHARMACY) [Suspect]
     Indication: COR PULMONALE
  2. SILDENAFIL CITRATE 2.5 MG/ML SUSPENSION (MADE BY PHARMACY) [Suspect]
     Indication: LUNG DISORDER
  3. DIURIL [Concomitant]
  4. FLOVENT [Concomitant]
  5. ALBUTEROL [Concomitant]
  6. MORPHINE [Concomitant]
  7. ADEKS [Concomitant]
  8. FERINSOL [Concomitant]
  9. ACTIGAL [Concomitant]

REACTIONS (4)
  - ABDOMINAL DISTENSION [None]
  - GASTROINTESTINAL DISORDER [None]
  - GENERAL PHYSICAL HEALTH DETERIORATION [None]
  - RESPIRATORY FAILURE [None]
